FAERS Safety Report 18564818 (Version 1)
Quarter: 2020Q4

REPORT INFORMATION
  Report Type: Spontaneous
  Country: ES (occurrence: ES)
  Receive Date: 20201201
  Receipt Date: 20201201
  Transmission Date: 20210114
  Serious: Yes (Other)
  Sender: FDA-Public Use
  Company Number: ES-PFIZER INC-2020467306

PATIENT
  Age: 13 Year
  Sex: Female
  Weight: 50.3 kg

DRUGS (1)
  1. AZITHROMYCIN ANHYDROUS. [Suspect]
     Active Substance: AZITHROMYCIN ANHYDROUS
     Dosage: 500 MG, 1X/DAY

REACTIONS (5)
  - Musculoskeletal chest pain [Unknown]
  - Bronchopulmonary aspergillosis [Recovering/Resolving]
  - Back pain [Unknown]
  - COVID-19 pneumonia [Unknown]
  - Vomiting [Unknown]

NARRATIVE: CASE EVENT DATE: 2020
